FAERS Safety Report 9547700 (Version 1)
Quarter: 2013Q3

REPORT INFORMATION
  Report Type: Spontaneous
  Country: GB (occurrence: None)
  Receive Date: 20130920
  Receipt Date: 20130920
  Transmission Date: 20140515
  Serious: Yes (Hospitalization)
  Sender: FDA-Public Use
  Company Number: SYM-2013-10841

PATIENT
  Age: 52 Year
  Sex: Female

DRUGS (8)
  1. FLUOROURACIL (FLUOROURACIL) (FLUOROURACIL) FLUOROURACIL (FLUOROURACIL) (FLUOROURACIL) [Suspect]
     Indication: BREAST CANCER
     Route: 042
     Dates: start: 20101011, end: 20110104
  2. EPIRUBICIN (EPIRUBICIN) (SOLUTION FOR INFUSION) (EPIRUBICIN) [Suspect]
     Indication: BREAST CANCER
     Route: 042
     Dates: start: 20101011, end: 20110104
  3. CYCLOPHOSPHAMIDE (CYCLOPHOSPHAMIDE) (CYCLOPHOSPHAMIDE) [Suspect]
     Indication: BREAST CANCER
     Route: 042
     Dates: start: 20101011, end: 20110104
  4. ONDANSETRON(ONDANSETRON)(ONDANSETRON) [Concomitant]
  5. DEXAMETHASONE(DEXAMETHASONE) (DEXAMETHASONE) [Concomitant]
  6. RATIOGRASTIM(FILGRASTIM)(FILGRASTIM) [Concomitant]
  7. METOCLOPRAMIDE (METOCLOPRAMIDE) (METOCLOPRAMIDE) [Concomitant]
  8. LORAZEPAM (LORAZEPAM) (LORAZEPAM) [Concomitant]

REACTIONS (2)
  - Dyspnoea [None]
  - Pneumonitis [None]
